FAERS Safety Report 7503517-6 (Version None)
Quarter: 2011Q2

REPORT INFORMATION
  Report Type: 
  Country: None (occurrence: None)
  Receive Date: 20110525
  Receipt Date: 20110520
  Transmission Date: 20111010
  Serious: Yes (Hospitalization)
  Sender: FDA-Public Use
  Company Number: ES-ROCHE-777144

PATIENT
  Age: 35 Year
  Sex: Male

DRUGS (4)
  1. TIZANIDINE HCL [Suspect]
     Route: 048
     Dates: start: 20110327, end: 20110328
  2. VALIUM [Suspect]
     Dosage: REPORTED AS 10MG/2ML.
     Route: 030
     Dates: start: 20110327, end: 20110327
  3. VOLTAREN [Suspect]
     Route: 030
  4. ACETAMINOPHEN [Suspect]
     Route: 048
     Dates: start: 20110327, end: 20110328

REACTIONS (1)
  - RENAL FAILURE ACUTE [None]
